FAERS Safety Report 9367660 (Version 2)
Quarter: 2014Q1

REPORT INFORMATION
  Report Type: Spontaneous
  Country: US (occurrence: US)
  Receive Date: 20130625
  Receipt Date: 20140324
  Transmission Date: 20141002
  Serious: Yes (Death, Hospitalization)
  Sender: FDA-Public Use
  Company Number: US-B.I. PHARMACEUTICALS,INC./RIDGEFIELD-2013-BI-17947BP

PATIENT
  Sex: Female
  Weight: 58.97 kg

DRUGS (1)
  1. PRADAXA [Suspect]
     Indication: ATRIAL FIBRILLATION
     Route: 065
     Dates: start: 201106, end: 201107

REACTIONS (3)
  - Cerebral haemorrhage [Fatal]
  - Intestinal haemorrhage [Fatal]
  - Ulcer haemorrhage [Fatal]
